FAERS Safety Report 6842284 (Version 5)
Quarter: 2014Q2

REPORT INFORMATION
  Report Type: Spontaneous
  Country: BR (occurrence: BR)
  Receive Date: 20080926
  Receipt Date: 20140530
  Transmission Date: 20141212
  Serious: Yes (Hospitalization, Other)
  Sender: FDA-Public Use
  Company Number: BR-BIOGENIDEC-2008BI023536

PATIENT
  Sex: Female

DRUGS (8)
  1. AVONEX [Suspect]
     Indication: MULTIPLE SCLEROSIS
     Route: 030
     Dates: start: 2004
  2. AVONEX [Suspect]
     Indication: MULTIPLE SCLEROSIS
     Route: 030
     Dates: start: 20060525, end: 20121101
  3. AVONEX [Suspect]
     Indication: MULTIPLE SCLEROSIS
     Route: 030
     Dates: start: 20121206, end: 201402
  4. ATENOLOL [Concomitant]
     Indication: HYPERTENSION
  5. BACLOFEN [Concomitant]
     Indication: MUSCLE RELAXANT THERAPY
  6. BACLOFEN [Concomitant]
     Indication: MUSCLE SPASMS
  7. BACLOFEN [Concomitant]
     Indication: TREMOR
  8. VITAMIN C [Concomitant]

REACTIONS (27)
  - Patient-device incompatibility [Unknown]
  - Infection [Unknown]
  - Impaired healing [Unknown]
  - Family stress [Unknown]
  - Haemangioma [Not Recovered/Not Resolved]
  - Hepatitis C [Unknown]
  - Multiple sclerosis [Unknown]
  - Ankle fracture [Unknown]
  - Fall [Recovered/Resolved]
  - Post procedural infection [Unknown]
  - Urinary tract infection [Not Recovered/Not Resolved]
  - Cystitis [Unknown]
  - Gait disturbance [Unknown]
  - Lower limb fracture [Unknown]
  - Tremor [Unknown]
  - Aggression [Unknown]
  - Crying [Unknown]
  - Mobility decreased [Unknown]
  - Musculoskeletal disorder [Unknown]
  - Somnolence [Unknown]
  - Foot deformity [Unknown]
  - Limb discomfort [Unknown]
  - Muscle spasms [Not Recovered/Not Resolved]
  - Influenza like illness [Recovered/Resolved]
  - Pain in extremity [Unknown]
  - Pain [Unknown]
  - Arthritis [Unknown]
